FAERS Safety Report 5871260-5 (Version None)
Quarter: 2008Q3

REPORT INFORMATION
  Report Type: 
  Country: None (occurrence: None)
  Receive Date: 20080905
  Receipt Date: 20080408
  Transmission Date: 20090109
  Serious: Yes (Other)
  Sender: FDA-Public Use
  Company Number: JP-JNJFOC-20080401477

PATIENT
  Sex: Female

DRUGS (6)
  1. HALOPERIDOL DECANOATE [Suspect]
     Route: 030
  2. HALOPERIDOL DECANOATE [Suspect]
     Route: 030
  3. HALOPERIDOL DECANOATE [Suspect]
     Indication: SCHIZOPHRENIA
     Route: 030
  4. RISPERDAL [Suspect]
     Route: 048
  5. RISPERDAL [Suspect]
     Indication: SCHIZOPHRENIA
     Route: 048
  6. CARBAMAZEPINE [Concomitant]
     Indication: ENZYME INDUCTION
     Route: 048
     Dates: start: 20080412, end: 20080506

REACTIONS (5)
  - AUTONOMIC NERVOUS SYSTEM IMBALANCE [None]
  - DRUG LEVEL INCREASED [None]
  - NEUROLEPTIC MALIGNANT SYNDROME [None]
  - PYREXIA [None]
  - TACHYCARDIA [None]
